FAERS Safety Report 10073830 (Version 2)
Quarter: 2014Q2

REPORT INFORMATION
  Report Type: Report from Study
  Country: US (occurrence: US)
  Receive Date: 20140412
  Receipt Date: 20140510
  Transmission Date: 20141212
  Serious: Yes (Hospitalization)
  Sender: FDA-Public Use
  Company Number: US-JNJFOC-20140400125

PATIENT
  Age: 25 Year
  Sex: Male
  Weight: 76.2 kg

DRUGS (7)
  1. PARACETAMOL [Suspect]
     Route: 048
  2. PARACETAMOL [Suspect]
     Indication: INTENTIONAL SELF-INJURY
     Route: 048
  3. DIPHENHYDRAMINE [Suspect]
     Indication: SELF INJURIOUS BEHAVIOUR
     Route: 048
  4. IBUPROFEN [Suspect]
     Indication: INTENTIONAL SELF-INJURY
     Route: 048
  5. NAPROXEN [Suspect]
     Indication: INTENTIONAL SELF-INJURY
     Route: 048
  6. BUPROPION [Suspect]
     Indication: INTENTIONAL SELF-INJURY
     Route: 048
  7. LEXAPRO [Concomitant]
     Indication: PRODUCT USED FOR UNKNOWN INDICATION
     Route: 065

REACTIONS (4)
  - Prothrombin time prolonged [Recovered/Resolved]
  - Liver function test abnormal [Recovered/Resolved]
  - Toxicity to various agents [Recovered/Resolved]
  - Lethargy [Recovered/Resolved]
